FAERS Safety Report 24989622 (Version 1)
Quarter: 2025Q1

REPORT INFORMATION
  Report Type: Report from Study
  Country: FR (occurrence: FR)
  Receive Date: 20250220
  Receipt Date: 20250220
  Transmission Date: 20250408
  Serious: Yes (Other)
  Sender: SERVIER
  Company Number: FR-SERVIER-S25000213

PATIENT

DRUGS (4)
  1. VORASIDENIB [Suspect]
     Active Substance: VORASIDENIB
     Indication: Glioma
     Dosage: 40 MG, QD
     Route: 048
     Dates: start: 20240806, end: 20250121
  2. KEPPRA [Concomitant]
     Active Substance: LEVETIRACETAM
     Indication: Epilepsy
     Dosage: 1125 MG, BID
     Route: 048
     Dates: start: 20210413, end: 20240912
  3. KEPPRA [Concomitant]
     Active Substance: LEVETIRACETAM
     Dosage: 1250 MG, BID
     Route: 048
     Dates: start: 20240912
  4. CAFFEINE;PHENOBARBITAL [Concomitant]
     Indication: Epilepsy
     Dosage: 50 MG, QD
     Route: 048
     Dates: start: 20230628

REACTIONS (2)
  - Disease progression [Unknown]
  - Thrombocytopenia [Unknown]

NARRATIVE: CASE EVENT DATE: 20241104
